FAERS Safety Report 6434663-6 (Version None)
Quarter: 2009Q4

REPORT INFORMATION
  Report Type: 
  Country: None (occurrence: None)
  Receive Date: 20091109
  Receipt Date: 20091109
  Transmission Date: 20100525
  Serious: Yes (Life-Threatening, Hospitalization, Disabling, Congenital Anomaly)
  Sender: FDA-Public Use
  Company Number: None

PATIENT
  Sex: Male
  Weight: 2.835 kg

DRUGS (3)
  1. DELALUTIN [Suspect]
     Indication: LUTEAL PHASE DEFICIENCY
     Dosage: 250MG  ONCE A WEEK IM; GESTATION WKS 5-17
     Route: 030
     Dates: start: 19840101
  2. DELALUTIN [Suspect]
     Indication: PROPHYLAXIS
     Dosage: 250MG  ONCE A WEEK IM; GESTATION WKS 5-17
     Route: 030
     Dates: start: 19840101
  3. WINE [Suspect]

REACTIONS (21)
  - ABNORMAL BEHAVIOUR [None]
  - CHROMOSOMAL DELETION [None]
  - CONGENITAL ANOMALY [None]
  - CONGENITAL TRICUSPID VALVE INCOMPETENCE [None]
  - CYTOGENETIC ABNORMALITY [None]
  - DRUG INTERACTION [None]
  - EMOTIONAL DISORDER [None]
  - FINE MOTOR DELAY [None]
  - FOETAL ALCOHOL SYNDROME [None]
  - FOETAL GROWTH RETARDATION [None]
  - GROSS MOTOR DELAY [None]
  - GROWTH RETARDATION [None]
  - HEART DISEASE CONGENITAL [None]
  - LEARNING DISORDER [None]
  - MATERNAL ALCOHOL USE [None]
  - MATERNAL DRUGS AFFECTING FOETUS [None]
  - MENTAL DISABILITY [None]
  - MICROCEPHALY [None]
  - SPEECH DISORDER DEVELOPMENTAL [None]
  - TERATOGENICITY [None]
  - UNEVALUABLE EVENT [None]
